FAERS Safety Report 9717838 (Version 1)
Quarter: 2013Q4

REPORT INFORMATION
  Report Type: Spontaneous
  Country: US (occurrence: US)
  Receive Date: 20131125
  Receipt Date: 20131125
  Transmission Date: 20140711
  Serious: No
  Sender: FDA-Public Use
  Company Number: US-VIVUS-2012V1000262

PATIENT
  Age: 62 Year
  Sex: Female
  Weight: 80.36 kg

DRUGS (7)
  1. QSYMIA [Suspect]
     Indication: WEIGHT DECREASED
     Route: 048
     Dates: start: 201210, end: 201211
  2. QSYMIA [Suspect]
     Route: 048
     Dates: start: 20121105
  3. LISINOPRIL [Concomitant]
     Indication: BLOOD PRESSURE
     Route: 048
     Dates: start: 201111
  4. ENALAPRIL [Concomitant]
     Indication: BLOOD PRESSURE
     Route: 048
  5. SIMVASTATIN [Concomitant]
     Indication: BLOOD CHOLESTEROL
     Route: 048
  6. CYMBALTA [Concomitant]
     Indication: ANXIETY
     Dates: end: 2012
  7. CYMBALTA [Concomitant]
     Dates: start: 2012

REACTIONS (3)
  - Abdominal distension [Not Recovered/Not Resolved]
  - Diarrhoea [Not Recovered/Not Resolved]
  - Abdominal pain [Not Recovered/Not Resolved]
